FAERS Safety Report 16363480 (Version 1)
Quarter: 2019Q2

REPORT INFORMATION
  Report Type: Spontaneous
  Country: US (occurrence: US)
  Receive Date: 20190528
  Receipt Date: 20190528
  Transmission Date: 20190711
  Serious: Yes (Hospitalization, Other)
  Sender: FDA-Public Use
  Company Number: US-PERRIGO-19US006194

PATIENT
  Age: 47 Year
  Sex: Female

DRUGS (2)
  1. ALLERGY [Suspect]
     Active Substance: UNSPECIFIED INGREDIENT
     Indication: INTENTIONAL OVERDOSE
     Dosage: UNKNOWN, UNKNOWN
     Route: 048
  2. ACETAMINOPHEN. [Suspect]
     Active Substance: ACETAMINOPHEN
     Indication: INTENTIONAL OVERDOSE
     Dosage: UNKNOWN, UNKNOWN
     Route: 048

REACTIONS (3)
  - Drug interaction [Recovered/Resolved]
  - Overdose [Recovered/Resolved]
  - Encephalopathy [Recovered/Resolved]
